FAERS Safety Report 6613330-X (Version None)
Quarter: 2010Q1

REPORT INFORMATION
  Report Type: 
  Country: None (occurrence: None)
  Receive Date: 20100304
  Receipt Date: 20100223
  Transmission Date: 20100710
  Serious: Yes (Other)
  Sender: FDA-Public Use
  Company Number: PHHY2009CA16617

PATIENT
  Sex: Female

DRUGS (3)
  1. EXJADE [Suspect]
     Indication: MYELOFIBROSIS
     Dosage: 1250 MG/DAY
     Route: 048
     Dates: start: 20080309
  2. EXJADE [Suspect]
     Indication: IRON OVERLOAD
     Dosage: 1500 MG/DAY
     Route: 048
  3. EXJADE [Suspect]
     Dosage: 500 MG/ DAY
     Route: 048
     Dates: start: 20100208

REACTIONS (5)
  - DIARRHOEA HAEMORRHAGIC [None]
  - HAEMORRHOIDS [None]
  - INCORRECT DOSE ADMINISTERED [None]
  - OVERDOSE [None]
  - RECTAL POLYP [None]
